FAERS Safety Report 8371846-2 (Version None)
Quarter: 2012Q2

REPORT INFORMATION
  Report Type: 
  Country: None (occurrence: None)
  Receive Date: 20120518
  Receipt Date: 20120511
  Transmission Date: 20120825
  Serious: Yes (Death)
  Sender: FDA-Public Use
  Company Number: AU-ROCHE-1068541

PATIENT
  Sex: Female

DRUGS (1)
  1. MIRCERA [Suspect]
     Indication: NEPHROGENIC ANAEMIA
     Dosage: DOSE:UNKNOWN
     Route: 065

REACTIONS (1)
  - DEATH [None]
